FAERS Safety Report 23572388 (Version 1)
Quarter: 2024Q1

REPORT INFORMATION
  Report Type: Spontaneous
  Country: US (occurrence: US)
  Receive Date: 20240227
  Receipt Date: 20240227
  Transmission Date: 20240410
  Serious: No
  Sender: FDA-Public Use
  Company Number: US-AVADEL CNS PHARMACEUTICALS, LLC-2024AVA00055

PATIENT
  Sex: Male
  Weight: 72.562 kg

DRUGS (13)
  1. LUMRYZ [Suspect]
     Active Substance: SODIUM OXYBATE
     Indication: Narcolepsy
     Dosage: ONCE NIGHTLY AT BEDTIME
     Dates: start: 202312
  2. LUMRYZ [Suspect]
     Active Substance: SODIUM OXYBATE
     Indication: Cataplexy
  3. CALCIUM [Concomitant]
     Active Substance: CALCIUM
     Dosage: 25 UNK
  4. POTASSIUM [Concomitant]
     Active Substance: POTASSIUM
  5. FISH OIL [Concomitant]
     Active Substance: FISH OIL
  6. VITAMIN D NOS [Concomitant]
     Active Substance: VITAMIN D NOS
  7. VITAMINS NOS [Concomitant]
     Active Substance: VITAMINS
  8. ATENOLOL [Concomitant]
     Active Substance: ATENOLOL
     Dosage: 25 MG
  9. FLUDROCORTISONE [Concomitant]
     Active Substance: FLUDROCORTISONE
     Dosage: 0.2 MG
  10. DULOXETINE [Concomitant]
     Active Substance: DULOXETINE
  11. CYMBALTA [Concomitant]
     Active Substance: DULOXETINE HYDROCHLORIDE
  12. MONTELUKAST [Concomitant]
     Active Substance: MONTELUKAST SODIUM
  13. WAKIX [Concomitant]
     Active Substance: PITOLISANT HYDROCHLORIDE

REACTIONS (3)
  - Brain fog [Not Recovered/Not Resolved]
  - Fatigue [Not Recovered/Not Resolved]
  - Somnolence [Not Recovered/Not Resolved]
